FAERS Safety Report 12632656 (Version 2)
Quarter: 2016Q3

REPORT INFORMATION
  Report Type: Spontaneous
  Country: US (occurrence: US)
  Receive Date: 20160808
  Receipt Date: 20160808
  Transmission Date: 20161109
  Serious: No
  Sender: FDA-Public Use
  Company Number: US-BEH-2015056428

PATIENT
  Sex: Female
  Weight: 45 kg

DRUGS (25)
  1. ALPRAZOLAM. [Concomitant]
     Active Substance: ALPRAZOLAM
  2. HYDROXYCHLOROQUINE [Concomitant]
     Active Substance: HYDROXYCHLOROQUINE
  3. CARAFATE [Concomitant]
     Active Substance: SUCRALFATE
  4. EPIPEN [Concomitant]
     Active Substance: EPINEPHRINE
  5. MORPHINE SULFATE. [Concomitant]
     Active Substance: MORPHINE SULFATE
  6. ASPIRIN EC [Concomitant]
     Active Substance: ASPIRIN
  7. OXYGEN. [Concomitant]
     Active Substance: OXYGEN
  8. FENTANYL TRANSDERMAL SYSTEM [Concomitant]
     Active Substance: FENTANYL
  9. FLONASE [Concomitant]
     Active Substance: FLUTICASONE PROPIONATE
  10. OMEPRAZOLE. [Concomitant]
     Active Substance: OMEPRAZOLE
  11. HIZENTRA [Suspect]
     Active Substance: HUMAN IMMUNOGLOBULIN G
     Indication: IMMUNODEFICIENCY COMMON VARIABLE
     Route: 058
  12. GABAPENTIN. [Concomitant]
     Active Substance: GABAPENTIN
  13. VITAMIN D2 [Concomitant]
     Active Substance: ERGOCALCIFEROL
  14. ONDANSETRON [Concomitant]
     Active Substance: ONDANSETRON
  15. COLACE [Concomitant]
     Active Substance: DOCUSATE SODIUM
  16. DIPHENHYDRAMINE. [Concomitant]
     Active Substance: DIPHENHYDRAMINE
  17. PROVENTIL HFA [Concomitant]
     Active Substance: ALBUTEROL SULFATE
  18. BYSTOLIC [Concomitant]
     Active Substance: NEBIVOLOL HYDROCHLORIDE
  19. ZANAFLEX [Concomitant]
     Active Substance: TIZANIDINE HYDROCHLORIDE
  20. DURAGESIC [Concomitant]
     Active Substance: FENTANYL
  21. LIDOCAINE. [Concomitant]
     Active Substance: LIDOCAINE
  22. TRAMADOL. [Concomitant]
     Active Substance: TRAMADOL
  23. PLAVIX [Concomitant]
     Active Substance: CLOPIDOGREL BISULFATE
  24. ACETAMINOPHEN. [Concomitant]
     Active Substance: ACETAMINOPHEN
  25. MYCOPHENOLATE [Concomitant]
     Active Substance: MYCOPHENOLIC ACID

REACTIONS (1)
  - Adverse drug reaction [Unknown]
